FAERS Safety Report 22223349 (Version 2)
Quarter: 2023Q2

REPORT INFORMATION
  Report Type: Spontaneous
  Country: US (occurrence: US)
  Receive Date: 20230418
  Receipt Date: 20230425
  Transmission Date: 20230721
  Serious: Yes (Other)
  Sender: FDA-Public Use
  Company Number: US-002147023-NVSC2023US088018

PATIENT
  Age: 58 Year
  Sex: Female

DRUGS (1)
  1. MAYZENT [Suspect]
     Active Substance: SIPONIMOD
     Indication: Relapsing multiple sclerosis
     Dosage: 2 MG, QD, MORNING, ALWAYS WITH FOOD
     Route: 065
     Dates: start: 20230303

REACTIONS (7)
  - Multiple sclerosis relapse [Unknown]
  - Migraine [Unknown]
  - Hypoaesthesia [Unknown]
  - Photosensitivity reaction [Unknown]
  - Headache [Unknown]
  - Nausea [Unknown]
  - Asthenia [Unknown]
